FAERS Safety Report 18632724 (Version 1)
Quarter: 2020Q4

REPORT INFORMATION
  Report Type: Spontaneous
  Country: US (occurrence: US)
  Receive Date: 20201218
  Receipt Date: 20201218
  Transmission Date: 20210114
  Serious: No
  Sender: FDA-Public Use
  Company Number: US-TEVA-2020-US-1860573

PATIENT
  Sex: Female

DRUGS (1)
  1. CLONAZEPAM TEVA [Suspect]
     Active Substance: CLONAZEPAM
     Indication: PANIC ATTACK
     Route: 065

REACTIONS (7)
  - Dysphemia [Unknown]
  - Withdrawal syndrome [Unknown]
  - Skin disorder [Unknown]
  - Alopecia [Unknown]
  - Panic attack [Unknown]
  - Drug ineffective [Unknown]
  - Aphasia [Unknown]
